FAERS Safety Report 5612539-1 (Version None)
Quarter: 2008Q1

REPORT INFORMATION
  Report Type: 
  Country: None (occurrence: None)
  Receive Date: 20080128
  Receipt Date: 20080116
  Transmission Date: 20080703
  Serious: Yes (Other)
  Sender: FDA-Public Use
  Company Number: 2008001529

PATIENT
  Age: 45 Year
  Sex: Male
  Weight: 83.9 kg

DRUGS (2)
  1. VISINE EYE DROPS [Suspect]
     Indication: OCULAR HYPERAEMIA
     Dosage: 2 OR 3 DROPS ONCE, OPHTHALMIC
     Route: 047
     Dates: start: 20080116, end: 20080116
  2. DRUG, UNSPECIFIED (DRUG UNSPECIFIED) [Concomitant]

REACTIONS (4)
  - BLINDNESS [None]
  - EYE BURNS [None]
  - INSTILLATION SITE REACTION [None]
  - MYDRIASIS [None]
